FAERS Safety Report 14469800 (Version 1)
Quarter: 2018Q1

REPORT INFORMATION
  Report Type: Spontaneous
  Country: IT (occurrence: IT)
  Receive Date: 20180131
  Receipt Date: 20180131
  Transmission Date: 20180509
  Serious: Yes (Other)
  Sender: FDA-Public Use
  Company Number: IT-PFIZER INC-2017478547

PATIENT
  Age: 49 Year
  Sex: Female

DRUGS (8)
  1. RIFACOL [Concomitant]
     Active Substance: RIFAXIMIN
     Dosage: UNK
  2. PANTORC [Concomitant]
     Active Substance: PANTOPRAZOLE SODIUM
     Dosage: UNK
  3. HALCION [Suspect]
     Active Substance: TRIAZOLAM
     Indication: INSOMNIA
     Dosage: 10 TABLETS OF HALCION 0.25 MG, SINGLE
     Route: 048
     Dates: start: 20170828, end: 20170828
  4. LASIX [Concomitant]
     Active Substance: FUROSEMIDE
     Dosage: UNK
  5. LUVION /00252501/ [Concomitant]
     Active Substance: CANRENOIC ACID
     Dosage: UNK
  6. ZOLOFT [Concomitant]
     Active Substance: SERTRALINE HYDROCHLORIDE
     Dosage: UNK
  7. LAEVOLAC [Concomitant]
     Active Substance: LACTULOSE
     Dosage: UNK
  8. DEURSIL [Concomitant]
     Active Substance: URSODIOL
     Dosage: UNK

REACTIONS (3)
  - Drug abuse [Recovered/Resolved]
  - Sopor [Recovered/Resolved]
  - Hypotension [Recovered/Resolved]

NARRATIVE: CASE EVENT DATE: 20170828
